FAERS Safety Report 9404106 (Version 1)
Quarter: 2013Q3

REPORT INFORMATION
  Report Type: Spontaneous
  Country: IT (occurrence: None)
  Receive Date: 20130711
  Receipt Date: 20130711
  Transmission Date: 20140515
  Serious: Yes (Death)
  Sender: FDA-Public Use
  Company Number: CIP-2013-00143

PATIENT
  Age: 29 Year
  Sex: Female

DRUGS (3)
  1. EPIRUBICIN [Suspect]
     Indication: CERVIX CARCINOMA
     Dosage: DAY 1 OF 3-WEEKLY
  2. PACLITAXEL (PACLITAXEL) [Suspect]
     Indication: CERVIX CARCINOMA
     Dosage: DAY 1 OF 3-WEEKLY
  3. CISPLATIN (CISPLATIN) [Suspect]
     Indication: CERVIX CARCINOMA
     Dosage: DAY 1 OF 3-WEEKLY

REACTIONS (2)
  - Cardiovascular disorder [None]
  - Sudden death [None]
